FAERS Safety Report 14599501 (Version 1)
Quarter: 2018Q1

REPORT INFORMATION
  Report Type: Spontaneous
  Country: US (occurrence: US)
  Receive Date: 20180305
  Receipt Date: 20180305
  Transmission Date: 20180509
  Serious: Yes (Death, Hospitalization, Other)
  Sender: FDA-Public Use
  Company Number: US-PFIZER INC-2018088082

PATIENT
  Age: 92 Year
  Sex: Male
  Weight: 58 kg

DRUGS (1)
  1. REVATIO [Suspect]
     Active Substance: SILDENAFIL CITRATE
     Dosage: 20 MG, 3X/DAY
     Route: 048

REACTIONS (4)
  - Interstitial lung disease [Fatal]
  - Gastrointestinal haemorrhage [Fatal]
  - Acute respiratory failure [Fatal]
  - Acute kidney injury [Fatal]
